FAERS Safety Report 9739131 (Version 2)
Quarter: 2013Q4

REPORT INFORMATION
  Report Type: Report from Study
  Country: JP (occurrence: JP)
  Receive Date: 20131209
  Receipt Date: 20131209
  Transmission Date: 20140711
  Serious: Yes (Life-Threatening, Hospitalization, Disabling)
  Sender: FDA-Public Use
  Company Number: JP-SHIRE-ALL1-2013-06554

PATIENT
  Age: 44 Year
  Sex: Male

DRUGS (32)
  1. 405 (LANTHANUM CARBONATE) [Suspect]
     Indication: HYPERPHOSPHATAEMIA
     Dosage: 2000 MG, UNKNOWN
     Route: 048
     Dates: start: 20110413, end: 20121109
  2. 405 (LANTHANUM CARBONATE) [Suspect]
     Dosage: 750 MG, UNKNOWN
     Route: 048
     Dates: start: 20090423, end: 20110412
  3. CALTAN [Concomitant]
     Indication: HYPERPHOSPHATAEMIA
     Dosage: 3000 MG, UNKNOWN
     Route: 048
     Dates: start: 2003, end: 20090929
  4. CALTAN [Concomitant]
     Dosage: 1500 MG, UNKNOWN
     Route: 048
     Dates: start: 20090930, end: 20110419
  5. CALTAN [Concomitant]
     Dosage: 3000 MG, UNKNOWN
     Dates: start: 20110420, end: 20120113
  6. CALTAN [Concomitant]
     Dosage: 4000 MG, UNKNOWN
     Route: 048
     Dates: start: 20120114, end: 20120606
  7. CALTAN [Concomitant]
     Dosage: 3000 MG, UNKNOWN
     Route: 048
     Dates: start: 20120607
  8. RENAGEL                            /01459901/ [Concomitant]
     Indication: HYPERPHOSPHATAEMIA
     Dosage: 4000 MG, UNKNOWN
     Route: 048
     Dates: start: 2005, end: 20110412
  9. RENAGEL                            /01459901/ [Concomitant]
     Dosage: 2500 MG, UNKNOWN
     Route: 048
     Dates: start: 20110420, end: 20110608
  10. RENAGEL                            /01459901/ [Concomitant]
     Dosage: 2400 MG, UNKNOWN
     Route: 048
     Dates: start: 20110609, end: 20111005
  11. RENAGEL                            /01459901/ [Concomitant]
     Dosage: 2500 MG, UNKNOWN
     Dates: start: 20111006
  12. OXAROL [Concomitant]
     Indication: PRODUCT USED FOR UNKNOWN INDICATION
     Dosage: 45 ?G, 1X/WEEK
     Route: 042
     Dates: start: 20090304, end: 20090712
  13. OXAROL [Concomitant]
     Dosage: 12.5 ?G, 1X/WEEK
     Route: 042
     Dates: start: 20090712, end: 20090903
  14. OXAROL [Concomitant]
     Dosage: 10 ?G, 1X/WEEK
     Route: 042
     Dates: start: 20090904, end: 20091104
  15. OXAROL [Concomitant]
     Dosage: 12.5 ?G, 1X/WEEK
     Route: 042
     Dates: start: 20091106, end: 20100108
  16. OXAROL [Concomitant]
     Dosage: 15 ?G, 1X/WEEK
     Route: 042
     Dates: start: 20100111, end: 20100407
  17. OXAROL [Concomitant]
     Dosage: 12.5 ?G, 1X/WEEK
     Route: 042
     Dates: start: 20100409, end: 20100428
  18. OXAROL [Concomitant]
     Dosage: 10 ?G, 1X/WEEK
     Route: 042
     Dates: start: 20100429, end: 20100527
  19. OXAROL [Concomitant]
     Dosage: 7.5 ?G, 1X/WEEK
     Route: 042
     Dates: start: 20100528, end: 20110210
  20. OXAROL [Concomitant]
     Dosage: 10 ?G, 1X/WEEK
     Route: 042
     Dates: start: 20110211, end: 20120213
  21. OXAROL [Concomitant]
     Dosage: 7.5 ?G, 1X/WEEK
     Route: 042
     Dates: start: 20120214, end: 20120404
  22. OXAROL [Concomitant]
     Dosage: 10 ?G, 1X/WEEK
     Route: 042
     Dates: start: 20120405, end: 20120807
  23. OXAROL [Concomitant]
     Dosage: 7.5 ?G, 1X/WEEK
     Route: 042
     Dates: start: 20120808
  24. LASIX                              /00032601/ [Concomitant]
     Indication: PRODUCT USED FOR UNKNOWN INDICATION
     Dosage: 120 MG, UNKNOWN
     Route: 048
  25. BERASTOLIN [Concomitant]
     Indication: PRODUCT USED FOR UNKNOWN INDICATION
     Dosage: 40 ?G, UNKNOWN
     Route: 048
  26. BLOPRESS [Concomitant]
     Indication: PRODUCT USED FOR UNKNOWN INDICATION
     Dosage: 4 MG, OTHER(IN ABSENCE OF DIALYSIS)
     Route: 048
  27. ALEROFF [Concomitant]
     Indication: PRODUCT USED FOR UNKNOWN INDICATION
     Dosage: 20 MG, UNKNOWN
     Route: 048
  28. NOVORAPID [Concomitant]
     Indication: PRODUCT USED FOR UNKNOWN INDICATION
     Dosage: 18 IU, UNKNOWN
     Route: 065
  29. EPOGIN [Concomitant]
     Indication: PRODUCT USED FOR UNKNOWN INDICATION
     Dosage: 3000 IU, 1X/WEEK
     Route: 042
  30. REGPARA [Concomitant]
     Indication: HYPERPARATHYROIDISM SECONDARY
     Dosage: 25 MG, UNKNOWN
     Route: 048
     Dates: start: 20100326, end: 20100720
  31. REGPARA [Concomitant]
     Dosage: 50 MG, UNKNOWN
     Route: 048
     Dates: start: 20100721
  32. ALFAROL [Concomitant]
     Indication: PRODUCT USED FOR UNKNOWN INDICATION
     Dosage: 0.5 ?G, UNKNOWN
     Route: 048
     Dates: start: 20101104

REACTIONS (5)
  - Putamen haemorrhage [Recovering/Resolving]
  - Hemiplegia [Unknown]
  - Aphasia [Unknown]
  - Dysphagia [Unknown]
  - Altered state of consciousness [Unknown]
